FAERS Safety Report 7672613-5 (Version None)
Quarter: 2011Q3

REPORT INFORMATION
  Report Type: 
  Country: None (occurrence: None)
  Receive Date: 20110809
  Receipt Date: 20100831
  Transmission Date: 20111222
  Serious: Yes (Other)
  Sender: FDA-Public Use
  Company Number: US-BAYER-200930746NA

PATIENT
  Sex: Male

DRUGS (4)
  1. OMNISCAN [Suspect]
     Indication: IMAGING PROCEDURE
     Dates: start: 20050303, end: 20050303
  2. PROHANCE [Suspect]
     Indication: IMAGING PROCEDURE
  3. MAGNEVIST [Suspect]
     Indication: IMAGING PROCEDURE
  4. MULTIHANCE [Suspect]
     Indication: IMAGING PROCEDURE

REACTIONS (6)
  - GENERAL PHYSICAL HEALTH DETERIORATION [None]
  - PAIN [None]
  - FIBROSIS [None]
  - SCAR [None]
  - NEPHROGENIC SYSTEMIC FIBROSIS [None]
  - DEFORMITY [None]
